FAERS Safety Report 18222076 (Version 2)
Quarter: 2020Q3

REPORT INFORMATION
  Report Type: Spontaneous
  Country: US (occurrence: US)
  Receive Date: 20200902
  Receipt Date: 20200907
  Transmission Date: 20201103
  Serious: No
  Sender: FDA-Public Use
  Company Number: US-BIOGEN-2020BI00913284

PATIENT
  Sex: Female

DRUGS (2)
  1. TECFIDERA [Suspect]
     Active Substance: DIMETHYL FUMARATE
  2. TECFIDERA [Suspect]
     Active Substance: DIMETHYL FUMARATE
     Indication: MULTIPLE SCLEROSIS
     Route: 048
     Dates: start: 20161017

REACTIONS (14)
  - Fear [Unknown]
  - Asthenia [Unknown]
  - Gait inability [Unknown]
  - Pruritus [Unknown]
  - Product dose omission issue [Unknown]
  - Nervousness [Unknown]
  - Memory impairment [Unknown]
  - Fatigue [Unknown]
  - Anxiety [Not Recovered/Not Resolved]
  - Feeling hot [Unknown]
  - Headache [Unknown]
  - Vision blurred [Unknown]
  - Dyspepsia [Unknown]
  - Stress [Unknown]
